FAERS Safety Report 25169001 (Version 1)
Quarter: 2025Q2

REPORT INFORMATION
  Report Type: Spontaneous
  Country: CN (occurrence: CN)
  Receive Date: 20250407
  Receipt Date: 20250407
  Transmission Date: 20250717
  Serious: Yes (Death, Other)
  Sender: SANOFI AVENTIS
  Company Number: CN-DialogSolutions-SAAVPROD-PI752428-C5

PATIENT
  Sex: Male

DRUGS (11)
  1. ANTI-THYMOCYTE GLOBULIN (RABBIT) NOS [Suspect]
     Active Substance: LAPINE T-LYMPHOCYTE IMMUNE GLOBULIN
     Indication: Mucopolysaccharidosis I
     Dates: start: 2019, end: 2019
  2. METHOTREXATE [Suspect]
     Active Substance: METHOTREXATE
     Indication: Prophylaxis against graft versus host disease
     Route: 042
     Dates: start: 20190713, end: 20190713
  3. METHOTREXATE [Suspect]
     Active Substance: METHOTREXATE
     Route: 042
     Dates: start: 20190715, end: 20190715
  4. METHOTREXATE [Suspect]
     Active Substance: METHOTREXATE
     Route: 042
     Dates: start: 20190718, end: 20190718
  5. CYCLOPHOSPHAMIDE [Suspect]
     Active Substance: CYCLOPHOSPHAMIDE
     Indication: Mucopolysaccharidosis I
     Dosage: 50 MG/KG/DAY, DAYS -5 TO -2, TOTAL DOSE 200 MG/KG
     Dates: start: 20190707, end: 20190710
  6. BUSULFAN [Suspect]
     Active Substance: BUSULFAN
     Indication: Mucopolysaccharidosis I
     Dosage: 4 MG/KG/DAY, DAYS -9 TO -6, TOTAL DOSE 16 MG/KG
     Dates: start: 20190703, end: 20190706
  7. CYCLOSPORINE [Suspect]
     Active Substance: CYCLOSPORINE
     Indication: Prophylaxis against graft versus host disease
     Dosage: 2.5 MG/KG, QD DAY -1 FOR + 5
     Route: 042
     Dates: start: 20190711, end: 20190717
  8. CYCLOSPORINE [Suspect]
     Active Substance: CYCLOSPORINE
     Dosage: 3 MG/KG, QD
     Route: 042
     Dates: start: 2019, end: 2019
  9. CYCLOSPORINE [Suspect]
     Active Substance: CYCLOSPORINE
     Dosage: 12.5 MG/KG, QD
     Route: 048
     Dates: start: 2019
  10. MYCOPHENOLATE MOFETIL [Suspect]
     Active Substance: MYCOPHENOLATE MOFETIL
     Indication: Prophylaxis against graft versus host disease
     Route: 048
     Dates: start: 20190711, end: 201908
  11. HUMAN IMMUNOGLOBULIN G [Concomitant]
     Active Substance: HUMAN IMMUNOGLOBULIN G
     Indication: Prophylaxis against graft versus host disease
     Dosage: UNK UNK, QW
     Route: 042

REACTIONS (4)
  - Respiratory failure [Fatal]
  - Pneumonia [Fatal]
  - Sepsis [Fatal]
  - Off label use [Unknown]
